FAERS Safety Report 8760608 (Version 1)
Quarter: 2012Q4

REPORT INFORMATION
  Report Type: Spontaneous
  Country: US (occurrence: None)
  Receive Date: 20120828
  Receipt Date: 20120828
  Transmission Date: 20130627
  Serious: Yes (Life-Threatening, Other)
  Sender: FDA-Public Use
  Company Number: None

PATIENT
  Age: 47 Year
  Sex: Female
  Weight: 90.72 kg

DRUGS (1)
  1. FENOFIBRATE [Suspect]
     Indication: TRIGLYCERIDES HIGH
     Route: 048

REACTIONS (3)
  - Hypersensitivity [None]
  - Product substitution issue [None]
  - Vomiting [None]
